FAERS Safety Report 18057458 (Version 1)
Quarter: 2020Q3

REPORT INFORMATION
  Report Type: Spontaneous
  Country: DK (occurrence: DK)
  Receive Date: 20200723
  Receipt Date: 20200723
  Transmission Date: 20201103
  Serious: Yes (Hospitalization)
  Sender: FDA-Public Use
  Company Number: NVSC2020DK202111

PATIENT
  Age: 69 Year
  Sex: Male

DRUGS (15)
  1. BICALUTAMID ^SANDOZ^ [Suspect]
     Active Substance: BICALUTAMIDE
     Indication: PROSTATE CANCER
     Dosage: 150 MG, QD
     Route: 048
     Dates: start: 20190410
  2. VENTOLINE [Concomitant]
     Active Substance: ALBUTEROL
     Indication: ASTHMA
     Dosage: 1 DF, PRN
     Route: 055
     Dates: start: 20150427
  3. MIRTAZAPINE. [Concomitant]
     Active Substance: MIRTAZAPINE
     Indication: DEPRESSION
     Dosage: 60 MG, QD
     Route: 048
     Dates: start: 20181011
  4. OXAZEPAM. [Concomitant]
     Active Substance: OXAZEPAM
     Indication: SEDATIVE THERAPY
     Dosage: 15 MG, PRN
     Route: 048
     Dates: start: 20180309
  5. VALDOXAN [Concomitant]
     Active Substance: AGOMELATINE
     Indication: DEPRESSION
     Dosage: 50 MG, QD
     Route: 048
     Dates: start: 20170823
  6. BETNOVAT [Concomitant]
     Active Substance: BETAMETHASONE
     Indication: ECZEMA
     Dosage: 1 DF, PRN
     Route: 003
     Dates: start: 20191009
  7. DESLORATADINE. [Concomitant]
     Active Substance: DESLORATADINE
     Indication: SEASONAL ALLERGY
     Dosage: 5 MG, QD
     Route: 048
     Dates: start: 20180509
  8. PHENERGAN [Concomitant]
     Active Substance: PROMETHAZINE HYDROCHLORIDE
     Indication: INSOMNIA
     Dosage: 25 MG, QD
     Route: 048
     Dates: start: 20200401
  9. BUFOMIX [Concomitant]
     Active Substance: BUDESONIDE\FORMOTEROL FUMARATE
     Indication: ASTHMA
     Dosage: 2 DF, QD
     Route: 055
     Dates: start: 20180405
  10. SILDENAFIL. [Concomitant]
     Active Substance: SILDENAFIL
     Indication: ERECTILE DYSFUNCTION
     Dosage: 50 MG, PRN
     Route: 048
     Dates: start: 20180910
  11. DERMOVAT [Concomitant]
     Active Substance: CLOBETASOL
     Indication: ECZEMA
     Dosage: 1 DF, QD (STRENGTH: 0.5 MG/G)
     Route: 003
     Dates: start: 20191009
  12. OVISON [Concomitant]
     Indication: SKIN DISORDER
     Dosage: 1 DF, QD (STRENGTH: 1 MG/G)
     Route: 003
     Dates: start: 20190102
  13. ANCOZAN [Concomitant]
     Active Substance: LOSARTAN POTASSIUM
     Indication: HYPERTENSION
     Dosage: 50 MG, QD
     Route: 048
     Dates: start: 20200115
  14. SIMVASTATIN ^HEXAL^ [Interacting]
     Active Substance: SIMVASTATIN
     Indication: HYPERCHOLESTEROLAEMIA
     Dosage: 80 MG, QD
     Route: 048
     Dates: start: 20190219, end: 20190621
  15. MONTELUKAST [Concomitant]
     Active Substance: MONTELUKAST SODIUM
     Indication: ASTHMA PROPHYLAXIS
     Dosage: 10 MG, QD
     Route: 048
     Dates: start: 20180503

REACTIONS (3)
  - Myositis [Recovered/Resolved]
  - Drug interaction [Recovered/Resolved]
  - Paraparesis [Recovered/Resolved]

NARRATIVE: CASE EVENT DATE: 201906
